FAERS Safety Report 22275365 (Version 5)
Quarter: 2023Q4

REPORT INFORMATION
  Report Type: Report from Study
  Country: NL (occurrence: None)
  Receive Date: 20230502
  Receipt Date: 20231208
  Transmission Date: 20240109
  Serious: Yes (Hospitalization)
  Sender: FDA-Public Use
  Company Number: NL-ROCHE-3287878

PATIENT
  Age: 68 Year
  Sex: Male
  Weight: 59 kg

DRUGS (10)
  1. ATEZOLIZUMAB [Suspect]
     Active Substance: ATEZOLIZUMAB
     Indication: Non-small cell lung cancer stage III
     Dosage: ON 13/JAN/2023, HE RECEIVED MOST RECENT DOSE 1680 MG OF STUDY DRUG PRIOR TO AE AND SAE.?START DATE O
     Route: 041
     Dates: start: 20230113
  2. TIRAGOLUMAB [Suspect]
     Active Substance: TIRAGOLUMAB
     Indication: Non-small cell lung cancer stage III
     Dosage: ON 13/JAN/2023, HE RECEIVED MOST RECENT DOSE 840 MG OF STUDY DRUG PRIOR TO AE AND SAE.?START DATE OF
     Route: 042
     Dates: start: 20230113
  3. METOPROLOL [Concomitant]
     Active Substance: METOPROLOL
     Indication: Hypertension
     Route: 048
     Dates: start: 20151021
  4. ASPIRIN [Concomitant]
     Active Substance: ASPIRIN
     Indication: Coronary artery insufficiency
     Route: 048
     Dates: start: 20151021
  5. PANTOPRAZOLE SODIUM [Concomitant]
     Active Substance: PANTOPRAZOLE SODIUM
     Route: 048
     Dates: start: 20151021
  6. ACETAMINOPHEN [Concomitant]
     Active Substance: ACETAMINOPHEN
     Indication: Chest pain
     Route: 048
     Dates: start: 20221019
  7. TEMAZEPAM [Concomitant]
     Active Substance: TEMAZEPAM
     Indication: Insomnia
     Route: 048
     Dates: start: 20220928
  8. DALTEPARIN SODIUM [Concomitant]
     Active Substance: DALTEPARIN SODIUM
     Indication: Thrombosis
     Route: 058
     Dates: start: 20230420
  9. CODEINE [Concomitant]
     Active Substance: CODEINE
     Indication: Pneumonia
     Route: 048
     Dates: start: 20230424
  10. POLYETHYLENE GLYCOLS [Concomitant]
     Active Substance: POLYETHYLENE GLYCOLS
     Route: 048
     Dates: start: 20230412

REACTIONS (3)
  - Pneumonia [Recovered/Resolved with Sequelae]
  - Immune-mediated lung disease [Recovered/Resolved with Sequelae]
  - Radiation pneumonitis [Recovered/Resolved with Sequelae]

NARRATIVE: CASE EVENT DATE: 20230211
